FAERS Safety Report 13947552 (Version 2)
Quarter: 2017Q4

REPORT INFORMATION
  Report Type: Report from Study
  Country: US (occurrence: US)
  Receive Date: 20170908
  Receipt Date: 20171111
  Transmission Date: 20180320
  Serious: Yes (Other)
  Sender: FDA-Public Use
  Company Number: US-BRISTOL-MYERS SQUIBB COMPANY-BMS-2017-078734

PATIENT
  Sex: Female
  Weight: 63.4 kg

DRUGS (2)
  1. LEFLUNOMIDE AN [Concomitant]
     Active Substance: LEFLUNOMIDE
     Indication: CONDITION AGGRAVATED
     Route: 065
  2. ABATACEPT [Suspect]
     Active Substance: ABATACEPT
     Indication: RHEUMATOID ARTHRITIS
     Dosage: 125 MG, QWK
     Route: 058
     Dates: start: 20170727

REACTIONS (6)
  - Cough [Unknown]
  - Dyspnoea [Unknown]
  - Dysphonia [Unknown]
  - Lung infection [Unknown]
  - Pyrexia [Unknown]
  - Wheezing [Unknown]
